APPROVED DRUG PRODUCT: TERIFLUNOMIDE
Active Ingredient: TERIFLUNOMIDE
Strength: 7MG
Dosage Form/Route: TABLET;ORAL
Application: A209583 | Product #001
Applicant: BRECKENRIDGE PHARMACEUTICAL INC
Approved: Sep 24, 2021 | RLD: No | RS: No | Type: DISCN